FAERS Safety Report 5137806-X (Version None)
Quarter: 2006Q4

REPORT INFORMATION
  Report Type: 
  Country: None (occurrence: None)
  Receive Date: 20061030
  Receipt Date: 20060117
  Transmission Date: 20070319
  Serious: No
  Sender: FDA-Public Use
  Company Number: US-GLAXOSMITHKLINE-A0589661A

PATIENT
  Age: 89 Year
  Sex: Female

DRUGS (13)
  1. ADVAIR HFA [Suspect]
     Indication: EMPHYSEMA
     Dosage: 1PUFF TWICE PER DAY
     Route: 055
  2. FLONASE [Suspect]
     Dosage: 2SPR TWICE PER DAY
     Route: 045
     Dates: end: 20060116
  3. ADVAIR HFA [Concomitant]
  4. NEBULIZER [Concomitant]
     Route: 065
  5. COUMADIN [Concomitant]
  6. LEVOXYL [Concomitant]
  7. FUROSEMIDE [Concomitant]
  8. DIGOXIN [Concomitant]
  9. IMDUR [Concomitant]
  10. LIPITOR [Concomitant]
  11. ZETIA [Concomitant]
  12. ARICEPT [Concomitant]
  13. ZOLOFT [Concomitant]

REACTIONS (3)
  - DRUG INEFFECTIVE [None]
  - EPISTAXIS [None]
  - THERAPEUTIC RESPONSE UNEXPECTED [None]
